FAERS Safety Report 18878180 (Version 1)
Quarter: 2021Q1

REPORT INFORMATION
  Report Type: Spontaneous
  Country: US (occurrence: US)
  Receive Date: 20210210
  Receipt Date: 20210210
  Transmission Date: 20210420
  Serious: Yes (Death)
  Sender: FDA-Public Use
  Company Number: None

PATIENT
  Age: 96 Year
  Sex: Female

DRUGS (1)
  1. PROLIA [Suspect]
     Active Substance: DENOSUMAB
     Dosage: FREQUENCY: OTHER?
     Route: 058
     Dates: start: 201709

REACTIONS (1)
  - Death [None]

NARRATIVE: CASE EVENT DATE: 20210210
